FAERS Safety Report 15360273 (Version 8)
Quarter: 2020Q4

REPORT INFORMATION
  Report Type: Other
  Country: CA (occurrence: CA)
  Receive Date: 20180907
  Receipt Date: 20201112
  Transmission Date: 20210113
  Serious: Yes (Hospitalization)
  Sender: FDA-Public Use
  Company Number: CA-ROCHE-2181138

PATIENT
  Age: 55 Year
  Sex: Female
  Weight: 64.47 kg

DRUGS (21)
  1. HYDROCHLOROTHIAZIDE. [Concomitant]
     Active Substance: HYDROCHLOROTHIAZIDE
  2. OCREVUS [Suspect]
     Active Substance: OCRELIZUMAB
     Dosage: 600 MG EVERY 6 MONTH
     Route: 042
  3. ZOPICLONE [Concomitant]
     Active Substance: ZOPICLONE
     Indication: ANXIETY
  4. MIRTAZAPINE. [Concomitant]
     Active Substance: MIRTAZAPINE
     Route: 048
  5. METHYLPREDNISOLONE. [Concomitant]
     Active Substance: METHYLPREDNISOLONE
     Dosage: IN 0.9% NACL
     Dates: start: 20191003
  6. SUPEUDOL [Concomitant]
     Active Substance: OXYCODONE HYDROCHLORIDE
     Indication: PAIN
     Route: 048
  7. PREMARIN [Concomitant]
     Active Substance: ESTROGENS, CONJUGATED
  8. SYNTHROID [Concomitant]
     Active Substance: LEVOTHYROXINE SODIUM
  9. RAMIPRIL. [Concomitant]
     Active Substance: RAMIPRIL
  10. CLONAZEPAM. [Concomitant]
     Active Substance: CLONAZEPAM
  11. METFORMIN [Concomitant]
     Active Substance: METFORMIN HYDROCHLORIDE
  12. AVAMYS [Concomitant]
     Active Substance: FLUTICASONE FUROATE
     Indication: SEASONAL ALLERGY
     Dosage: 2 SPRAYS IN EACH NOSTRIL;ONGOING
     Route: 045
  13. OCREVUS [Suspect]
     Active Substance: OCRELIZUMAB
     Indication: RELAPSING-REMITTING MULTIPLE SCLEROSIS
     Dosage: 300 MG DAY 0 AND 14 THEN 600 MG Q 6 MONTHS
     Route: 042
     Dates: start: 20180310
  14. MIRTAZAPINE. [Concomitant]
     Active Substance: MIRTAZAPINE
     Route: 048
  15. ATORVASTATIN [Concomitant]
     Active Substance: ATORVASTATIN
     Route: 048
  16. FERROUS SULFATE. [Concomitant]
     Active Substance: FERROUS SULFATE
  17. QUETIAPINE. [Concomitant]
     Active Substance: QUETIAPINE
     Dosage: TAKE ONE TO THREE TABLETS HS (PT USES ONLY ONE)
     Route: 048
  18. GLICLAZIDE [Concomitant]
     Active Substance: GLICLAZIDE
     Route: 048
  19. ACETAMINOPHEN. [Concomitant]
     Active Substance: ACETAMINOPHEN
  20. NACL [Concomitant]
     Active Substance: SODIUM CHLORIDE
     Dates: start: 20191003
  21. OCREVUS [Suspect]
     Active Substance: OCRELIZUMAB
     Dosage: IN NACL 0.9% 500 CC AT 40 CC/HR
     Route: 042
     Dates: start: 20191003

REACTIONS (6)
  - Urinary tract infection [Not Recovered/Not Resolved]
  - Blood glucose increased [Not Recovered/Not Resolved]
  - Fatigue [Not Recovered/Not Resolved]
  - Fear [Not Recovered/Not Resolved]
  - Anxiety [Unknown]
  - Infusion related reaction [Recovered/Resolved]

NARRATIVE: CASE EVENT DATE: 201806
